FAERS Safety Report 4577348-3 (Version None)
Quarter: 2005Q1

REPORT INFORMATION
  Report Type: 
  Country: None (occurrence: None)
  Receive Date: 20050210
  Receipt Date: 20050209
  Transmission Date: 20050727
  Serious: Yes (Life-Threatening, Hospitalization, Disabling, Other)
  Sender: FDA-Public Use
  Company Number: US-GLAXOSMITHKLINE-A0544804A

PATIENT
  Sex: Male

DRUGS (4)
  1. ZIAGEN [Suspect]
     Indication: HIV INFECTION
     Dosage: 600MG PER DAY
     Route: 048
  2. EFAVIRENZ [Concomitant]
     Indication: HIV INFECTION
  3. TENOFOVIR [Concomitant]
     Indication: HIV INFECTION
  4. EPIVIR [Concomitant]

REACTIONS (10)
  - BLOOD CREATININE INCREASED [None]
  - BLOOD PRESSURE DECREASED [None]
  - DYSPNOEA [None]
  - GASTROINTESTINAL DISORDER [None]
  - HYPERSENSITIVITY [None]
  - MALAISE [None]
  - NASOPHARYNGITIS [None]
  - PROTEIN URINE PRESENT [None]
  - PYREXIA [None]
  - URINE OUTPUT DECREASED [None]
